FAERS Safety Report 12508775 (Version 3)
Quarter: 2016Q3

REPORT INFORMATION
  Report Type: Spontaneous
  Country: US (occurrence: US)
  Receive Date: 20160629
  Receipt Date: 20160713
  Transmission Date: 20161109
  Serious: Yes (Other)
  Sender: FDA-Public Use
  Company Number: US-HORIZON-RAV-0115-2016

PATIENT
  Age: 12 Year
  Sex: Male
  Weight: 20.3 kg

DRUGS (4)
  1. RAVICTI [Suspect]
     Active Substance: GLYCEROL PHENYLBUTYRATE
     Indication: ARGINASE DEFICIENCY
     Dosage: 3 ML THREE TIMES DAILY, DECREASED TO 2 ML THREE TIMES DAILY
     Dates: start: 20140312
  2. LACTULOSE. [Concomitant]
     Active Substance: LACTULOSE
     Indication: CONSTIPATION
  3. VITAMIN D [Concomitant]
     Active Substance: CHOLECALCIFEROL
  4. PROTEIN FORMULA [Concomitant]

REACTIONS (8)
  - Gait disturbance [Unknown]
  - Growth retardation [Unknown]
  - Weight gain poor [Unknown]
  - Amino acid level increased [Recovered/Resolved]
  - Muscle spasticity [Unknown]
  - Decreased appetite [Recovered/Resolved]
  - Gastroenteritis viral [Recovered/Resolved]
  - Lethargy [Recovered/Resolved]

NARRATIVE: CASE EVENT DATE: 20160320
